FAERS Safety Report 16398386 (Version 1)
Quarter: 2019Q2

REPORT INFORMATION
  Report Type: Spontaneous
  Country: US (occurrence: US)
  Receive Date: 20190606
  Receipt Date: 20190606
  Transmission Date: 20190711
  Serious: Yes (Other)
  Sender: FDA-Public Use
  Company Number: US-BAYER-2019-109557

PATIENT
  Sex: Female

DRUGS (4)
  1. MIRENA [Suspect]
     Active Substance: LEVONORGESTREL
     Dosage: 20 MCG/24HR, CONT
     Route: 015
     Dates: start: 2012
  2. AMOXICILLIN. [Concomitant]
     Active Substance: AMOXICILLIN
  3. MIRENA [Suspect]
     Active Substance: LEVONORGESTREL
     Dosage: 20 MCG/24HR, CONT
     Route: 015
     Dates: start: 201603
  4. MIRENA [Suspect]
     Active Substance: LEVONORGESTREL

REACTIONS (7)
  - Device expulsion [None]
  - Menstruation delayed [None]
  - Fatigue [None]
  - Device dislocation [None]
  - Menorrhagia [None]
  - Menorrhagia [None]
  - Sluggishness [None]

NARRATIVE: CASE EVENT DATE: 2012
